FAERS Safety Report 10019392 (Version 1)
Quarter: 2014Q1

REPORT INFORMATION
  Report Type: Spontaneous
  Country: US (occurrence: US)
  Receive Date: 20140318
  Receipt Date: 20140318
  Transmission Date: 20141002
  Serious: Yes (Hospitalization)
  Sender: FDA-Public Use
  Company Number: US-INCYTE CORPORATION-2014IN000626

PATIENT
  Age: 71 Year
  Sex: Female

DRUGS (12)
  1. JAKAFI [Suspect]
     Dosage: NOT SPECIFIED
     Route: 048
  2. CYMBALTA [Concomitant]
  3. AMBIEN [Concomitant]
  4. ZOLOFT [Concomitant]
  5. LOSARTAN [Concomitant]
  6. NORVASC [Concomitant]
  7. GEMFIBROZIL [Concomitant]
  8. GABAPENTIN [Concomitant]
  9. GLIPIZIDE [Concomitant]
  10. CRESTOR [Concomitant]
  11. METOPROLOL [Concomitant]
  12. ASPIRIN [Concomitant]

REACTIONS (1)
  - Hospitalisation [Unknown]
